FAERS Safety Report 7978275-1 (Version None)
Quarter: 2011Q4

REPORT INFORMATION
  Report Type: 
  Country: None (occurrence: None)
  Receive Date: 20111214
  Receipt Date: 20111208
  Transmission Date: 20120403
  Serious: Yes (Other)
  Sender: FDA-Public Use
  Company Number: US-PFIZER INC-2011300238

PATIENT
  Sex: Male
  Weight: 91 kg

DRUGS (6)
  1. LIPITOR [Suspect]
     Indication: BLOOD CHOLESTEROL INCREASED
     Dosage: 40 MG, 1X/DAY
     Route: 048
     Dates: start: 20100430
  2. SPIRIVA [Concomitant]
     Dosage: UNK
  3. ACETYLSALICYLIC ACID [Concomitant]
     Dosage: UNK, 1X/DAY
  4. TOPROL-XL [Concomitant]
     Dosage: 50 MG, 1X/DAY
  5. SINGULAIR [Concomitant]
     Dosage: 10 MG, 1X/DAY
  6. AMLODIPINE [Concomitant]
     Dosage: 5 MG, 1X/DAY

REACTIONS (2)
  - CARDIAC VALVE DISEASE [None]
  - DYSPNOEA [None]
